FAERS Safety Report 13964791 (Version 3)
Quarter: 2017Q4

REPORT INFORMATION
  Report Type: Spontaneous
  Country: US (occurrence: US)
  Receive Date: 20170913
  Receipt Date: 20171121
  Transmission Date: 20180320
  Serious: No
  Sender: FDA-Public Use
  Company Number: US-JNJFOC-20170904143

PATIENT
  Age: 47 Year
  Sex: Male
  Weight: 61.24 kg

DRUGS (1)
  1. SIMPONI [Suspect]
     Active Substance: GOLIMUMAB
     Indication: PSORIATIC ARTHROPATHY
     Dosage: EITHER 2008 OR 2009
     Route: 058

REACTIONS (4)
  - Device malfunction [Unknown]
  - Underdose [Unknown]
  - Injection site haemorrhage [Unknown]
  - Accidental exposure to product [Unknown]

NARRATIVE: CASE EVENT DATE: 20170905
